FAERS Safety Report 6305064-6 (Version None)
Quarter: 2009Q3

REPORT INFORMATION
  Report Type: 
  Country: None (occurrence: None)
  Receive Date: 20090811
  Receipt Date: 20070531
  Transmission Date: 20100115
  Serious: Yes (Death)
  Sender: FDA-Public Use
  Company Number: FR-PFIZER INC-2009249811

PATIENT
  Age: 76 Year

DRUGS (14)
  1. IRINOTECAN HCL [Suspect]
     Indication: GASTRIC CANCER
     Dosage: 600 MG, CYCLIC
     Route: 042
  2. EPIRUBICIN HCL [Suspect]
     Indication: GASTRIC CANCER
     Dosage: 85 MG, CYCLIC
     Dates: start: 20070927
  3. CISPLATIN [Suspect]
     Indication: GASTRIC CANCER
     Dosage: 100 MG, CYCLIC
     Dates: start: 20070927
  4. FLUOROURACIL [Suspect]
     Indication: GASTRIC CANCER
     Dosage: 7800 MG, CYCLIC
     Route: 041
  5. CAPECITABINE [Suspect]
     Indication: GASTRIC CANCER
     Dosage: 28000 MG, CYCLIC
     Dates: start: 20070927
  6. FOLINIC ACID [Suspect]
     Indication: GASTRIC CANCER
     Dosage: 700 MG, CYCLIC
  7. LARGACTIL [Concomitant]
     Indication: NAUSEA
     Dosage: 20 DROPS PER DAY
     Route: 048
  8. KALEORID [Concomitant]
     Indication: HYPOKALAEMIA
     Dosage: 1 DF, 3X/DAY
     Route: 048
  9. DOMPERIDONE [Concomitant]
     Indication: NAUSEA
     Dosage: 1 DF, 3X/DAY
     Route: 048
  10. PAROXETINE [Concomitant]
     Indication: DEPRESSION
     Dosage: 1 DF, 1X/DAY
     Route: 048
  11. ALLOPURINOL [Concomitant]
     Indication: GOUT
     Dosage: 1 DF, 1X/DAY
     Route: 048
  12. ALPRAZOLAM [Concomitant]
     Indication: ANXIETY
     Dosage: 1 DF, 1X/DAY
     Route: 048
  13. NEXIUM [Concomitant]
     Indication: PROPHYLAXIS AGAINST GASTROINTESTINAL ULCER
     Dosage: 1 DF, 1X/DAY
     Route: 048
  14. PROSCAR [Concomitant]
     Indication: BENIGN PROSTATIC HYPERPLASIA
     Dosage: 1 DF, 1X/DAY
     Route: 048

REACTIONS (1)
  - SUDDEN DEATH [None]
